FAERS Safety Report 23878726 (Version 7)
Quarter: 2024Q4

REPORT INFORMATION
  Report Type: Spontaneous
  Country: US (occurrence: US)
  Receive Date: 20240521
  Receipt Date: 20241004
  Transmission Date: 20250115
  Serious: No
  Sender: PFIZER
  Company Number: US-PFIZER INC-202400108679

PATIENT
  Age: 12 Year
  Sex: Male

DRUGS (3)
  1. GENOTROPIN [Suspect]
     Active Substance: SOMATROPIN
     Indication: Hypopituitarism
     Dosage: 1.0 MG, DAILY
  2. GENOTROPIN [Suspect]
     Active Substance: SOMATROPIN
     Indication: Growth hormone deficiency
     Dosage: 1.4 MG, DAILY, (NIGHTLY AT BEDTIME/NIGHTLY 7 NIGHTS PER WEEK ) (DOSE IN INCREMENTS OF 0.2 MG)
     Route: 058
     Dates: start: 20240531
  3. GENOTROPIN [Suspect]
     Active Substance: SOMATROPIN
     Dosage: 1.4 MG, DAILY, (NIGHTLY AT BEDTIME/NIGHTLY 7 NIGHTS PER WEEK ) (DOSE IN INCREMENTS OF 0.2 MG)
     Route: 058
     Dates: start: 20240629

REACTIONS (5)
  - Drug dose omission by device [Unknown]
  - Device use error [Unknown]
  - Device mechanical issue [Unknown]
  - Device breakage [Unknown]
  - Injection site pain [Unknown]
